FAERS Safety Report 18315118 (Version 1)
Quarter: 2020Q3

REPORT INFORMATION
  Report Type: Spontaneous
  Country: US (occurrence: US)
  Receive Date: 20200925
  Receipt Date: 20200925
  Transmission Date: 20201103
  Serious: No
  Sender: FDA-Public Use
  Company Number: US-VERASTEM-2020-00089

PATIENT

DRUGS (1)
  1. COPIKTRA [Suspect]
     Active Substance: DUVELISIB
     Indication: PERIPHERAL T-CELL LYMPHOMA UNSPECIFIED
     Dosage: UNK UNK, UNK
     Route: 048
     Dates: start: 2019

REACTIONS (2)
  - Respiratory symptom [Unknown]
  - Product use in unapproved indication [Unknown]
